FAERS Safety Report 13959118 (Version 1)
Quarter: 2017Q3

REPORT INFORMATION
  Report Type: Spontaneous
  Country: US (occurrence: US)
  Receive Date: 20170912
  Receipt Date: 20170912
  Transmission Date: 20171128
  Serious: No
  Sender: FDA-Public Use
  Company Number: US-JNJFOC-20170824355

PATIENT
  Age: 75 Year
  Sex: Male
  Weight: 83.92 kg

DRUGS (4)
  1. ZYRTEC [Suspect]
     Active Substance: CETIRIZINE HYDROCHLORIDE
     Indication: ALLERGIC RESPIRATORY DISEASE
     Dosage: USUALLY TAKES 1 ZYRTEC, 1X PER DAY. TODAY, HE MAY HAVE TAKEN 1 TABLET, 2X DURING THE DAY.
     Route: 048
  2. ZYRTEC [Suspect]
     Active Substance: CETIRIZINE HYDROCHLORIDE
     Indication: EMPHYSEMA
     Dosage: USUALLY TAKES 1 ZYRTEC, 1X PER DAY. TODAY, HE MAY HAVE TAKEN 1 TABLET, 2X DURING THE DAY.
     Route: 048
  3. ZYRTEC [Suspect]
     Active Substance: CETIRIZINE HYDROCHLORIDE
     Indication: SEASONAL ALLERGY
     Dosage: USUALLY TAKES 1 ZYRTEC, 1X PER DAY. TODAY, HE MAY HAVE TAKEN 1 TABLET, 2X DURING THE DAY.
     Route: 048
  4. ZYRTEC [Suspect]
     Active Substance: CETIRIZINE HYDROCHLORIDE
     Indication: MULTIPLE ALLERGIES
     Dosage: USUALLY TAKES 1 ZYRTEC, 1X PER DAY. TODAY, HE MAY HAVE TAKEN 1 TABLET, 2X DURING THE DAY.
     Route: 048

REACTIONS (2)
  - Product use in unapproved indication [Unknown]
  - Overdose [Unknown]
